FAERS Safety Report 7332996-2 (Version None)
Quarter: 2011Q1

REPORT INFORMATION
  Report Type: 
  Country: None (occurrence: None)
  Receive Date: 20110304
  Receipt Date: 20110225
  Transmission Date: 20110831
  Serious: Yes (Hospitalization)
  Sender: FDA-Public Use
  Company Number: US-US-EMD SERONO, INC.-231278J10USA

PATIENT
  Sex: Female
  Weight: 59 kg

DRUGS (4)
  1. REBIF [Suspect]
     Indication: MULTIPLE SCLEROSIS
     Route: 058
     Dates: start: 20050622
  2. VIVELLE-DOT [Concomitant]
     Indication: ORAL CONTRACEPTION
  3. TOPAMAX [Concomitant]
  4. STEROIDS [Concomitant]
     Indication: MULTIPLE SCLEROSIS RELAPSE
     Route: 042
     Dates: start: 20080601, end: 20080601

REACTIONS (2)
  - ENDOMETRIOSIS [None]
  - ADENOMYOSIS [None]
